FAERS Safety Report 4837716-9 (Version None)
Quarter: 2005Q4

REPORT INFORMATION
  Report Type: 
  Country: None (occurrence: None)
  Receive Date: 20051123
  Receipt Date: 20051123
  Transmission Date: 20060501
  Serious: Yes (Life-Threatening, Hospitalization)
  Sender: FDA-Public Use
  Company Number: None

PATIENT
  Age: 56 Year
  Sex: Male

DRUGS (1)
  1. ALPRAZOLAM [Suspect]
     Dosage: ~ 50 TABS PO  ? STRENGTH
     Route: 048

REACTIONS (5)
  - FALL [None]
  - LETHARGY [None]
  - MENTAL STATUS CHANGES [None]
  - OVERDOSE [None]
  - SPEECH DISORDER [None]
